FAERS Safety Report 7299139-5 (Version None)
Quarter: 2011Q1

REPORT INFORMATION
  Report Type: 
  Country: None (occurrence: None)
  Receive Date: 20110216
  Receipt Date: 20110216
  Transmission Date: 20110831
  Serious: Yes (Other)
  Sender: FDA-Public Use
  Company Number: None

PATIENT
  Age: 49 Year
  Sex: Male
  Weight: 108.8633 kg

DRUGS (2)
  1. ANTISEPTIC ALCOHOL SWAB 70% ISOPROPYL ALCOHOL [Suspect]
  2. LANTUS [Concomitant]

REACTIONS (2)
  - PRODUCT QUALITY ISSUE [None]
  - INJECTION SITE INFECTION [None]
